FAERS Safety Report 8480099-6 (Version None)
Quarter: 2012Q2

REPORT INFORMATION
  Report Type: 
  Country: None (occurrence: None)
  Receive Date: 20120629
  Receipt Date: 20120618
  Transmission Date: 20120825
  Serious: Yes (Death, Life-Threatening, Hospitalization, Other)
  Sender: FDA-Public Use
  Company Number: JP-ELI_LILLY_AND_COMPANY-JP201205010416

PATIENT
  Sex: Male
  Weight: 65 kg

DRUGS (9)
  1. DIAZEPAM [Concomitant]
     Dosage: 10 MG, UNK
     Dates: start: 20120515, end: 20120522
  2. VALPROATE SODIUM [Concomitant]
     Dosage: 800 MG, UNK
     Route: 048
     Dates: start: 20120515
  3. LEVETIRACETAM [Concomitant]
     Dosage: 500 MG, UNK
     Route: 048
     Dates: start: 20120522, end: 20120524
  4. SILECE [Concomitant]
     Indication: INSOMNIA
     Dosage: 4 MG, UNK
     Route: 048
     Dates: start: 20120522, end: 20120523
  5. DEPAKENE [Concomitant]
     Dosage: 200 MG, UNK
     Dates: start: 20120515, end: 20120518
  6. ZYPREXA [Suspect]
     Indication: POSTICTAL PSYCHOSIS
     Dosage: 20 MG, UNK
     Route: 048
     Dates: start: 20120515, end: 20120523
  7. LEVETIRACETAM [Concomitant]
     Indication: EPILEPSY
     Dosage: 1000 MG, UNK
     Route: 048
     Dates: start: 20120515, end: 20120521
  8. TEGRETOL [Concomitant]
     Indication: EPILEPSY
     Dosage: 600 MG, UNK
     Route: 048
     Dates: start: 20120518, end: 20120524
  9. LENDORMIN [Concomitant]
     Dosage: 0.25 MG, PRN
     Dates: start: 20120515, end: 20120522

REACTIONS (4)
  - NEUROLEPTIC MALIGNANT SYNDROME [None]
  - DEHYDRATION [None]
  - OFF LABEL USE [None]
  - PSYCHOMOTOR HYPERACTIVITY [None]
